FAERS Safety Report 23352638 (Version 1)
Quarter: 2023Q4

REPORT INFORMATION
  Report Type: Report from Study
  Country: CA (occurrence: CA)
  Receive Date: 20231230
  Receipt Date: 20231230
  Transmission Date: 20240109
  Serious: Yes (Other)
  Sender: FDA-Public Use
  Company Number: CA-CELLTRION INC.-2023CA024811

PATIENT

DRUGS (1)
  1. RITUXIMAB [Suspect]
     Active Substance: RITUXIMAB
     Indication: Rheumatoid arthritis
     Route: 041

REACTIONS (10)
  - Arterial disorder [Unknown]
  - Micturition disorder [Unknown]
  - Vascular rupture [Unknown]
  - Insomnia [Unknown]
  - Blister [Unknown]
  - Fatigue [Unknown]
  - Gastrointestinal disorder [Unknown]
  - Hypertension [Unknown]
  - Pain [Unknown]
  - Urticaria [Unknown]
